FAERS Safety Report 13114996 (Version 2)
Quarter: 2017Q1

REPORT INFORMATION
  Report Type: Spontaneous
  Country: JP (occurrence: JP)
  Receive Date: 20170113
  Receipt Date: 20170130
  Transmission Date: 20170428
  Serious: Yes (Other)
  Sender: FDA-Public Use
  Company Number: JP-BRISTOL-MYERS SQUIBB COMPANY-BMS-2017-002155

PATIENT
  Age: 51 Year
  Sex: Female

DRUGS (2)
  1. BARACLUDE [Suspect]
     Active Substance: ENTECAVIR
     Indication: CHRONIC HEPATITIS B
     Dosage: 0.5 MG, QD
     Route: 048
  2. BARACLUDE [Suspect]
     Active Substance: ENTECAVIR
     Indication: PRODUCT USED FOR UNKNOWN INDICATION
     Dosage: 0.5 MG, QOD
     Route: 048

REACTIONS (1)
  - Renal impairment [Unknown]

NARRATIVE: CASE EVENT DATE: 20170110
